FAERS Safety Report 21668237 (Version 1)
Quarter: 2022Q4

REPORT INFORMATION
  Report Type: Spontaneous
  Country: GB (occurrence: GB)
  Receive Date: 20221201
  Receipt Date: 20221201
  Transmission Date: 20230112
  Serious: Yes (Hospitalization, Other)
  Sender: FDA-Public Use
  Company Number: GB-MHRA-MED-202211181631141420-LTBFN

PATIENT
  Sex: Female

DRUGS (4)
  1. CLINDAMYCIN [Suspect]
     Active Substance: CLINDAMYCIN
     Indication: Adverse drug reaction
     Dosage: 3 DOSAGE FORMS DAILY; TAKE 1 CAPSULE BY MOUTH THREE TIMES DAILY FOR 7 DAYS ; THERAPY END DATE : NOT
     Route: 048
     Dates: start: 20221111
  2. CLINDAMYCIN [Suspect]
     Active Substance: CLINDAMYCIN
     Indication: Ear infection
  3. PREDNISONE [Concomitant]
     Active Substance: PREDNISONE
     Indication: Adverse drug reaction
     Dosage: THERAPY DURATION : 5 DAYS
     Dates: start: 20221111, end: 20221116
  4. PREDNISONE [Concomitant]
     Active Substance: PREDNISONE
     Indication: Ear infection

REACTIONS (4)
  - Hypoaesthesia [Recovering/Resolving]
  - Hypoaesthesia [Recovering/Resolving]
  - Hypoaesthesia [Recovering/Resolving]
  - Hypoaesthesia [Recovering/Resolving]

NARRATIVE: CASE EVENT DATE: 20221116
